FAERS Safety Report 6440525-0 (Version None)
Quarter: 2009Q4

REPORT INFORMATION
  Report Type: 
  Country: None (occurrence: None)
  Receive Date: 20091113
  Receipt Date: 20091109
  Transmission Date: 20100525
  Serious: Yes (Death, Other)
  Sender: FDA-Public Use
  Company Number: PHBS2006JP15892

PATIENT
  Age: 59 Year
  Sex: Male
  Weight: 67 kg

DRUGS (12)
  1. CYCLOSPORINE [Suspect]
     Indication: APLASTIC ANAEMIA
     Dosage: 300 MG
     Route: 048
     Dates: start: 20050801, end: 20050929
  2. PREDNISOLONE [Concomitant]
     Indication: SYSTEMIC LUPUS ERYTHEMATOSUS
     Dosage: 30 MG
  3. PREDNISOLONE [Concomitant]
     Dosage: 25 MG
  4. PREDNISOLONE [Concomitant]
     Dosage: 22.5MG
  5. PREDNISOLONE [Concomitant]
     Dosage: 20 MG
  6. PREDNISOLONE [Concomitant]
     Dosage: 15 MG
  7. ANTITHYMOCYTE IMMUNOGLOBULIN [Concomitant]
     Indication: APLASTIC ANAEMIA
     Dosage: 700 MG
     Dates: start: 20050801, end: 20050805
  8. SOLU-CORTEF [Concomitant]
     Dosage: 500 MG
     Dates: start: 20050801
  9. SOLU-CORTEF [Concomitant]
     Dosage: 100 MG
  10. SOLU-CORTEF [Concomitant]
     Dosage: 600 MG
  11. SOLU-CORTEF [Concomitant]
     Dosage: 100 MG
     Dates: end: 20050805
  12. BLOOD TRANSFUSION, AUXILIARY PRODUCTS [Concomitant]

REACTIONS (13)
  - ARTERIAL RUPTURE [None]
  - CARDIO-RESPIRATORY ARREST [None]
  - ENDOTRACHEAL INTUBATION [None]
  - HAEMOPTYSIS [None]
  - KLEBSIELLA SEPSIS [None]
  - LIVER DISORDER [None]
  - LUNG INFILTRATION [None]
  - PANCYTOPENIA [None]
  - PULMONARY HAEMORRHAGE [None]
  - PULMONARY VASCULITIS [None]
  - PYREXIA [None]
  - RESUSCITATION [None]
  - SEPTIC SHOCK [None]
